FAERS Safety Report 9605748 (Version 2)
Quarter: 2013Q4

REPORT INFORMATION
  Report Type: Spontaneous
  Country: US (occurrence: US)
  Receive Date: 20131008
  Receipt Date: 20131024
  Transmission Date: 20140711
  Serious: Yes (Other)
  Sender: FDA-Public Use
  Company Number: US-TEVA-436230USA

PATIENT
  Sex: Female

DRUGS (2)
  1. BUSPIRONE [Suspect]
  2. CLONAZEPAM [Concomitant]

REACTIONS (3)
  - Autoimmune thyroiditis [Unknown]
  - Depression [Unknown]
  - Anxiety [Unknown]
